FAERS Safety Report 4583981-5 (Version None)
Quarter: 2005Q1

REPORT INFORMATION
  Report Type: 
  Country: None (occurrence: None)
  Receive Date: 20050125
  Receipt Date: 20041104
  Transmission Date: 20050727
  Serious: No
  Sender: FDA-Public Use
  Company Number: USA041183204

PATIENT
  Age: 78 Year
  Sex: Female

DRUGS (8)
  1. FORTEO [Suspect]
     Dates: start: 20040825
  2. EVISTA [Suspect]
     Dates: start: 20030101
  3. PREDNISONE TAB [Concomitant]
  4. TOPROL-XL [Concomitant]
  5. CALCIUM CITRATE [Concomitant]
  6. VITAMIN E [Concomitant]
  7. MULTIVITAMIN [Concomitant]
  8. ASCORBIC ACID [Concomitant]

REACTIONS (2)
  - FATIGUE [None]
  - SOMNOLENCE [None]
